FAERS Safety Report 4805979-1 (Version None)
Quarter: 2005Q4

REPORT INFORMATION
  Report Type: 
  Country: None (occurrence: None)
  Receive Date: 20051019
  Receipt Date: 20051006
  Transmission Date: 20060501
  Serious: Yes (Other)
  Sender: FDA-Public Use
  Company Number: PHFR2005GB03308

PATIENT
  Age: 14 Year
  Sex: Female

DRUGS (3)
  1. DICLOFENAC (DICLOFENAC) [Suspect]
     Dosage: ORAL
     Route: 048
  2. METFORMIN HCL [Suspect]
     Dosage: ORAL
     Route: 048
  3. ATENOLOL [Suspect]
     Dosage: ORAL
     Route: 048

REACTIONS (8)
  - BLOOD ALBUMIN INCREASED [None]
  - BRADYCARDIA [None]
  - CONVULSION [None]
  - HAEMODIALYSIS [None]
  - HYPOGLYCAEMIA [None]
  - HYPOTENSION [None]
  - LACTIC ACIDOSIS [None]
  - MULTIPLE DRUG OVERDOSE [None]
